FAERS Safety Report 9385224 (Version 2)
Quarter: 2013Q3

REPORT INFORMATION
  Report Type: Spontaneous
  Country: JP (occurrence: JP)
  Receive Date: 20130705
  Receipt Date: 20130712
  Transmission Date: 20140515
  Serious: Yes (Death, Hospitalization, Other)
  Sender: FDA-Public Use
  Company Number: JP-B.I. PHARMACEUTICALS,INC./RIDGEFIELD-2013-BI-16782NB

PATIENT
  Age: 88 Year
  Sex: Male
  Weight: 66 kg

DRUGS (7)
  1. PRAZAXA [Suspect]
     Dosage: 300 MG
     Route: 065
     Dates: start: 201104, end: 20120125
  2. TANATRIL [Concomitant]
     Dosage: 5 MG
  3. GASTER D [Concomitant]
     Dosage: 40 MG
  4. ITOROL [Concomitant]
     Dosage: 40 MG
  5. SUNRYTHM [Concomitant]
     Dosage: 150 MG
  6. URIEF [Concomitant]
     Dosage: 8 MG
  7. BUFFERIN 81 MG [Concomitant]
     Dosage: 81 MG

REACTIONS (9)
  - Cardio-respiratory arrest [Fatal]
  - Haemoglobin decreased [Unknown]
  - Lower gastrointestinal haemorrhage [Unknown]
  - Embolic stroke [Unknown]
  - Lower gastrointestinal haemorrhage [Unknown]
  - Lower gastrointestinal haemorrhage [Unknown]
  - Hemiplegia [Unknown]
  - Dysphagia [Unknown]
  - Depressed level of consciousness [Unknown]
